FAERS Safety Report 5852400-0 (Version None)
Quarter: 2008Q3

REPORT INFORMATION
  Report Type: 
  Country: None (occurrence: None)
  Receive Date: 20080820
  Receipt Date: 20080820
  Transmission Date: 20090109
  Serious: No
  Sender: FDA-Public Use
  Company Number: None

PATIENT
  Sex: Female
  Weight: 27.2158 kg

DRUGS (6)
  1. OVIDE [Suspect]
     Indication: LICE INFESTATION
     Dates: start: 20070101, end: 20080101
  2. EQUATE [Concomitant]
  3. RID [Concomitant]
  4. LICE MD [Concomitant]
  5. OLIVE OIL [Concomitant]
  6. MAYONAISE [Concomitant]

REACTIONS (2)
  - DISEASE RECURRENCE [None]
  - INFESTATION [None]
